FAERS Safety Report 20532010 (Version 4)
Quarter: 2023Q2

REPORT INFORMATION
  Report Type: Report from Study
  Country: JP (occurrence: None)
  Receive Date: 20220301
  Receipt Date: 20230612
  Transmission Date: 20230721
  Serious: Yes (Death, Hospitalization)
  Sender: FDA-Public Use
  Company Number: 2022A087480

PATIENT
  Age: 69 Year
  Sex: Male
  Weight: 58 kg

DRUGS (1)
  1. CALQUENCE [Suspect]
     Active Substance: ACALABRUTINIB
     Indication: Chronic lymphocytic leukaemia
     Route: 048
     Dates: start: 20220203, end: 20220307

REACTIONS (3)
  - Pleural effusion [Unknown]
  - Pneumonia [Fatal]
  - Cytomegalovirus infection [Fatal]

NARRATIVE: CASE EVENT DATE: 20220219
